FAERS Safety Report 7971803-1 (Version None)
Quarter: 2011Q4

REPORT INFORMATION
  Report Type: 
  Country: None (occurrence: None)
  Receive Date: 20111212
  Receipt Date: 20111206
  Transmission Date: 20120403
  Serious: Yes (Life-Threatening, Other)
  Sender: FDA-Public Use
  Company Number: US-ASTRAZENECA-2010SE43100

PATIENT
  Age: 50 Year
  Sex: Female

DRUGS (1)
  1. SEROQUEL [Suspect]
     Indication: BIPOLAR DISORDER
     Route: 048

REACTIONS (7)
  - DEPERSONALISATION [None]
  - SUICIDAL IDEATION [None]
  - INTENTIONAL DRUG MISUSE [None]
  - HANGOVER [None]
  - ANGER [None]
  - SUICIDE ATTEMPT [None]
  - DRUG DOSE OMISSION [None]
